FAERS Safety Report 7393742-X (Version None)
Quarter: 2011Q1

REPORT INFORMATION
  Report Type: 
  Country: None (occurrence: None)
  Receive Date: 20110330
  Receipt Date: 20110330
  Transmission Date: 20110831
  Serious: Yes (Death)
  Sender: FDA-Public Use
  Company Number: None

PATIENT
  Age: 79 Year
  Sex: Male
  Weight: 77.5651 kg

DRUGS (5)
  1. PRADAXA [Suspect]
     Indication: ARRHYTHMIA
     Dosage: 1 TABLET -150 MG- TWICE DAILY PO
     Route: 048
  2. PRADAXA [Suspect]
     Indication: ANTICOAGULANT THERAPY
     Dosage: 1 TABLET -150 MG- TWICE DAILY PO
     Route: 048
  3. PLAVIX [Suspect]
     Indication: ARRHYTHMIA
     Dosage: 1 TABLET -75 MG- ONCE DAILY PO
     Route: 048
  4. PLAVIX [Suspect]
     Indication: ANTICOAGULANT THERAPY
     Dosage: 1 TABLET -75 MG- ONCE DAILY PO
     Route: 048
  5. WARFARIN [Concomitant]

REACTIONS (3)
  - SQUAMOUS CELL CARCINOMA OF SKIN [None]
  - EXSANGUINATION [None]
  - COAGULOPATHY [None]
